FAERS Safety Report 9919600 (Version 1)
Quarter: 2014Q1

REPORT INFORMATION
  Report Type: Spontaneous
  Country: BR (occurrence: BR)
  Receive Date: 20140224
  Receipt Date: 20140224
  Transmission Date: 20141002
  Serious: Yes (Other)
  Sender: FDA-Public Use
  Company Number: PHHY2014BR019182

PATIENT
  Age: 51 Year
  Sex: Female
  Weight: 64 kg

DRUGS (3)
  1. CITALOPRAM SANDOZ [Suspect]
     Indication: PANIC DISORDER
     Dosage: 10 MG, QD, HALF TABLET PER DAY DURING FIRST WEEK.
     Route: 048
     Dates: start: 20140115, end: 20140118
  2. LOSARTAN [Concomitant]
     Indication: HYPERTENSION
     Dosage: 50 MG, QD
  3. RIVOTRIL [Concomitant]
     Indication: PANIC ATTACK
     Dosage: 025 MG, QD

REACTIONS (10)
  - Urine output increased [Recovered/Resolved]
  - Renal pain [Recovered/Resolved]
  - Bedridden [Recovered/Resolved]
  - Yawning [Recovered/Resolved]
  - Somnolence [Recovered/Resolved]
  - Back pain [Recovered/Resolved]
  - Sedation [Recovered/Resolved]
  - Nausea [Recovered/Resolved]
  - Decreased appetite [Recovered/Resolved]
  - Weight decreased [Recovered/Resolved]
